FAERS Safety Report 10658410 (Version 1)
Quarter: 2014Q4

REPORT INFORMATION
  Report Type: Spontaneous
  Country: HR (occurrence: HR)
  Receive Date: 20141217
  Receipt Date: 20141217
  Transmission Date: 20150529
  Serious: Yes (Hospitalization, Other)
  Sender: FDA-Public Use
  Company Number: HR-ROXANE LABORATORIES, INC.-2014-BI-59756GD

PATIENT
  Age: 26 Year
  Sex: Male

DRUGS (3)
  1. VALPROIC ACID. [Suspect]
     Active Substance: VALPROIC ACID
     Indication: BIPOLAR DISORDER
     Dosage: 1000 MG
     Route: 065
     Dates: start: 2010, end: 201208
  2. SERTRALINE [Suspect]
     Active Substance: SERTRALINE HYDROCHLORIDE
     Indication: BIPOLAR DISORDER
     Dosage: 50 MG
     Route: 065
     Dates: start: 2010
  3. VALPROIC ACID. [Suspect]
     Active Substance: VALPROIC ACID
     Route: 065
     Dates: start: 201208

REACTIONS (5)
  - Toxicity to various agents [Unknown]
  - Sopor [Recovered/Resolved]
  - Peripheral nerve paresis [Recovered/Resolved]
  - Mental status changes [Recovered/Resolved]
  - Suicide attempt [Unknown]

NARRATIVE: CASE EVENT DATE: 201208
